FAERS Safety Report 5708526-5 (Version None)
Quarter: 2008Q2

REPORT INFORMATION
  Report Type: 
  Country: None (occurrence: None)
  Receive Date: 20080414
  Receipt Date: 20080414
  Transmission Date: 20081010
  Serious: Yes (Life-Threatening, Hospitalization)
  Sender: FDA-Public Use
  Company Number: None

PATIENT
  Age: 53 Year
  Sex: Male

DRUGS (4)
  1. LOSARTAN POTASSIUM [Suspect]
     Indication: CARDIAC FAILURE CONGESTIVE
     Dosage: 12.5MG EVERY DAY PO
     Route: 048
     Dates: start: 20080207, end: 20080227
  2. LOSARTAN POTASSIUM [Suspect]
     Indication: DIABETES MELLITUS
     Dosage: 12.5MG EVERY DAY PO
     Route: 048
     Dates: start: 20080207, end: 20080227
  3. LISINOPRIL [Suspect]
     Indication: DIABETES MELLITUS
     Dosage: 40MG BID PO
     Route: 048
     Dates: start: 20071112, end: 20080227
  4. LISINOPRIL [Suspect]
     Indication: HYPERTENSION
     Dosage: 40MG BID PO
     Route: 048
     Dates: start: 20071112, end: 20080227

REACTIONS (1)
  - ANGIOEDEMA [None]
